FAERS Safety Report 11456330 (Version 8)
Quarter: 2016Q1

REPORT INFORMATION
  Report Type: Spontaneous
  Country: US (occurrence: US)
  Receive Date: 20150903
  Receipt Date: 20160216
  Transmission Date: 20160525
  Serious: Yes (Hospitalization, Other)
  Sender: FDA-Public Use
  Company Number: US-ACTELION-A-NJ2015-123537

PATIENT
  Age: 82 Year
  Sex: Female

DRUGS (20)
  1. WARFARIN [Concomitant]
     Active Substance: WARFARIN
     Dosage: 5 MG, QD
     Route: 048
  2. LEVOTHYROXINE. [Concomitant]
     Active Substance: LEVOTHYROXINE
     Dosage: 137 MCG, QD
     Route: 048
  3. FLECAINIDE [Concomitant]
     Active Substance: FLECAINIDE
  4. ADCIRCA [Concomitant]
     Active Substance: TADALAFIL
     Dosage: 20 MG, QD
     Route: 048
  5. LETAIRIS [Concomitant]
     Active Substance: AMBRISENTAN
  6. LIPITOR [Concomitant]
     Active Substance: ATORVASTATIN CALCIUM
     Dosage: 20 MG, QD
     Route: 048
  7. DILTIAZEM HCL [Concomitant]
     Active Substance: DILTIAZEM HYDROCHLORIDE
     Dosage: 120 MG, QD
     Route: 048
  8. PROZAC [Concomitant]
     Active Substance: FLUOXETINE HYDROCHLORIDE
     Dosage: 20 MG, QD
     Route: 048
  9. SILDENAFIL. [Concomitant]
     Active Substance: SILDENAFIL
  10. TORSEMIDE. [Concomitant]
     Active Substance: TORSEMIDE
     Dosage: 20 MG, BID
     Route: 048
  11. LOSARTAN POTASSIUM. [Concomitant]
     Active Substance: LOSARTAN POTASSIUM
     Dosage: 100 MG, QD
     Route: 048
  12. VENTAVIS [Suspect]
     Active Substance: ILOPROST
     Dosage: UNK UNK, QID
     Route: 055
  13. FISH OIL [Concomitant]
     Active Substance: FISH OIL
     Dosage: 1 CAPSULE, QD
     Route: 048
  14. VENTAVIS [Suspect]
     Active Substance: ILOPROST
     Dosage: 5 MCG, 5-9X DAILY
     Route: 055
  15. ATORVASTATIN CALCIUM. [Concomitant]
     Active Substance: ATORVASTATIN CALCIUM
     Dosage: 10 MG, QD
  16. VENTAVIS [Suspect]
     Active Substance: ILOPROST
     Indication: PULMONARY ARTERIAL HYPERTENSION
     Dosage: 5 MCG, 6-9X DAILY
     Route: 055
     Dates: start: 20090616
  17. PROLIA [Concomitant]
     Active Substance: DENOSUMAB
     Dosage: 60 MG/ML SOLUTION, 1 SHOT EVERY 6 MONTHS
  18. AMITRIPTYLINE [Concomitant]
     Active Substance: AMITRIPTYLINE
     Dosage: 25 MG, QD
     Route: 048
  19. LASIX [Concomitant]
     Active Substance: FUROSEMIDE
     Dosage: 80 MG, QD
  20. VENTAVIS [Suspect]
     Active Substance: ILOPROST
     Dosage: UNK UNK, QID
     Route: 055

REACTIONS (25)
  - Open reduction of fracture [Unknown]
  - Dilatation ventricular [Recovering/Resolving]
  - Tricuspid valve incompetence [Recovering/Resolving]
  - Vision blurred [Unknown]
  - Exercise tolerance decreased [Recovering/Resolving]
  - Left ventricular end-diastolic pressure increased [Recovering/Resolving]
  - Orthopnoea [Recovering/Resolving]
  - Somnolence [Unknown]
  - Pulmonary hypertension [Recovering/Resolving]
  - Sleep apnoea syndrome [Recovering/Resolving]
  - Hip fracture [Unknown]
  - Condition aggravated [Recovering/Resolving]
  - Aortic arteriosclerosis [Unknown]
  - Fall [Unknown]
  - Right ventricular systolic pressure decreased [Recovering/Resolving]
  - Oedema [Recovering/Resolving]
  - Mitral valve stenosis [Unknown]
  - Bronchitis [Unknown]
  - Rash [Unknown]
  - Ankle fracture [Unknown]
  - Cardiac failure congestive [Recovering/Resolving]
  - Dizziness [Unknown]
  - Diarrhoea [Unknown]
  - Pelvic fracture [Unknown]
  - Dyspnoea [Unknown]

NARRATIVE: CASE EVENT DATE: 20150911
